FAERS Safety Report 9302073 (Version 2)
Quarter: 2013Q2

REPORT INFORMATION
  Report Type: Spontaneous
  Country: US (occurrence: US)
  Receive Date: 20130521
  Receipt Date: 20130628
  Transmission Date: 20140414
  Serious: Yes (Disabling, Other)
  Sender: FDA-Public Use
  Company Number: US-009507513-1305USA010832

PATIENT
  Age: 22 Year
  Sex: Female

DRUGS (2)
  1. NUVARING [Suspect]
     Dosage: UNK
     Route: 067
     Dates: start: 2012, end: 2013
  2. FISH OIL [Concomitant]

REACTIONS (8)
  - Blindness unilateral [Recovering/Resolving]
  - Dermatitis contact [Recovered/Resolved]
  - Vitreous floaters [Recovering/Resolving]
  - Visual field defect [Recovering/Resolving]
  - Paraesthesia [Recovering/Resolving]
  - Dizziness [Recovering/Resolving]
  - Fatigue [Recovering/Resolving]
  - Mood altered [Recovering/Resolving]
